FAERS Safety Report 4530249-9 (Version None)
Quarter: 2004Q4

REPORT INFORMATION
  Report Type: 
  Country: None (occurrence: None)
  Receive Date: 20041215
  Receipt Date: 20041202
  Transmission Date: 20050328
  Serious: Yes (Life-Threatening)
  Sender: FDA-Public Use
  Company Number: 2004108066

PATIENT
  Sex: Male

DRUGS (5)
  1. SOLU-MEDROL [Suspect]
     Indication: BEHCET'S SYNDROME
     Dosage: 1 GRAM, INTRAVENOUS
     Route: 042
     Dates: start: 20041115, end: 20041115
  2. WARFARIN (WARFARIN) [Concomitant]
  3. HEPARIN-FRACTION, SODIUM SALT (HEPARIN-FRACTION, SODIUM SALT) [Concomitant]
  4. CYCLOSPORINE [Concomitant]
  5. PREDNISOLONE [Concomitant]

REACTIONS (2)
  - ATRIOVENTRICULAR BLOCK [None]
  - CARDIAC FLUTTER [None]
